FAERS Safety Report 5619076-9 (Version None)
Quarter: 2008Q1

REPORT INFORMATION
  Report Type: 
  Country: None (occurrence: None)
  Receive Date: 20080205
  Receipt Date: 20080130
  Transmission Date: 20080703
  Serious: Yes (Hospitalization)
  Sender: FDA-Public Use
  Company Number: 2008SP000054

PATIENT
  Age: 73 Year
  Sex: Female
  Weight: 69.8539 kg

DRUGS (4)
  1. PEG-INTRON [Suspect]
     Indication: HEPATITIS C
     Dosage: 120 MCG; QW; SC
     Route: 058
     Dates: start: 20071116
  2. RIBAVIRIN [Suspect]
     Indication: HEPATITIS C
     Dosage: 1000 MG; QD; PO
     Route: 048
     Dates: start: 20071116
  3. GLIPIZIDE [Concomitant]
  4. QUINAPRIL HCL [Concomitant]

REACTIONS (13)
  - FEELING HOT [None]
  - HYPERHIDROSIS [None]
  - INFREQUENT BOWEL MOVEMENTS [None]
  - LOWER RESPIRATORY TRACT INFECTION [None]
  - ORAL INTAKE REDUCED [None]
  - PALLOR [None]
  - PRODUCTIVE COUGH [None]
  - RECTAL HAEMORRHAGE [None]
  - SINUSITIS [None]
  - STARING [None]
  - TREMOR [None]
  - UNRESPONSIVE TO STIMULI [None]
  - WEIGHT DECREASED [None]
